FAERS Safety Report 16131145 (Version 12)
Quarter: 2020Q1

REPORT INFORMATION
  Report Type: Report from Study
  Country: US (occurrence: US)
  Receive Date: 20190328
  Receipt Date: 20200102
  Transmission Date: 20200409
  Serious: Yes (Death, Hospitalization)
  Sender: FDA-Public Use
  Company Number: US-ACTELION-A-NJ2017-164902

PATIENT
  Age: 70 Year
  Sex: Female
  Weight: 49.89 kg

DRUGS (11)
  1. OPSUMIT [Suspect]
     Active Substance: MACITENTAN
     Indication: PULMONARY HYPERTENSION
     Dosage: 10 MG, QD
     Route: 048
     Dates: start: 2017
  2. ORENITRAM [Suspect]
     Active Substance: TREPROSTINIL
     Indication: PRODUCT USED FOR UNKNOWN INDICATION
     Dosage: 0.125 MG, TID
     Route: 065
  3. SILDENAFIL. [Concomitant]
     Active Substance: SILDENAFIL
  4. REMODULIN [Suspect]
     Active Substance: TREPROSTINIL
     Indication: PRODUCT USED FOR UNKNOWN INDICATION
     Dosage: UNK
     Route: 065
  5. REMODULIN [Suspect]
     Active Substance: TREPROSTINIL
     Dosage: 2.5 MG/ML
     Route: 058
  6. REMODULIN [Suspect]
     Active Substance: TREPROSTINIL
     Dosage: 5 MG/ML
     Route: 058
  7. ORENITRAM [Suspect]
     Active Substance: TREPROSTINIL
     Dosage: .75 UNK, UNK
     Route: 065
  8. ORENITRAM [Suspect]
     Active Substance: TREPROSTINIL
     Dosage: .5 MG, UNK
     Route: 065
  9. REMODULIN [Suspect]
     Active Substance: TREPROSTINIL
     Dosage: 5 MG/ML
     Route: 058
  10. NIFEDIPINE. [Concomitant]
     Active Substance: NIFEDIPINE
  11. OPSUMIT [Suspect]
     Active Substance: MACITENTAN
     Dosage: 10 MG, QD
     Route: 048

REACTIONS (33)
  - Death [Fatal]
  - Pain in extremity [Unknown]
  - Blood potassium decreased [Unknown]
  - Hypoaesthesia [Unknown]
  - Infusion site pain [Unknown]
  - Renal function test abnormal [Unknown]
  - Catheter site nodule [Unknown]
  - Exercise tolerance decreased [Unknown]
  - Influenza like illness [Unknown]
  - Fall [Unknown]
  - Peripheral swelling [Not Recovered/Not Resolved]
  - Weight fluctuation [Unknown]
  - Myalgia [Recovering/Resolving]
  - Asthenia [Unknown]
  - Product dose omission [Unknown]
  - Infusion site erythema [Unknown]
  - Therapy change [Unknown]
  - Herpes zoster [Not Recovered/Not Resolved]
  - Fluid retention [Recovering/Resolving]
  - Anaemia [Unknown]
  - Sluggishness [Unknown]
  - Infusion site discomfort [Unknown]
  - Infusion site swelling [Unknown]
  - Catheterisation cardiac [Unknown]
  - Pulmonary arterial hypertension [Unknown]
  - Disease progression [Unknown]
  - Headache [Unknown]
  - Device occlusion [Unknown]
  - Gout [Unknown]
  - Device dislocation [Recovered/Resolved]
  - Diarrhoea [Unknown]
  - Hospitalisation [Unknown]
  - Dyspnoea [Unknown]

NARRATIVE: CASE EVENT DATE: 2017
